FAERS Safety Report 18116339 (Version 6)
Quarter: 2020Q4

REPORT INFORMATION
  Report Type: Spontaneous
  Country: US (occurrence: US)
  Receive Date: 20200805
  Receipt Date: 20201228
  Transmission Date: 20210113
  Serious: Yes (Congenital Anomaly, Other)
  Sender: FDA-Public Use
  Company Number: NVSC2020US216183

PATIENT
  Age: 0 Day
  Sex: Female

DRUGS (2)
  1. ZOFRAN [Suspect]
     Active Substance: ONDANSETRON HYDROCHLORIDE
     Indication: FOETAL EXPOSURE DURING PREGNANCY
     Dosage: MOTHER DOSE: 08 MG, BID
     Route: 064
  2. ZOFRAN [Suspect]
     Active Substance: ONDANSETRON HYDROCHLORIDE
     Indication: FOETAL EXPOSURE DURING PREGNANCY
     Route: 064

REACTIONS (53)
  - Adrenogenital syndrome [Unknown]
  - Foetal exposure during pregnancy [Unknown]
  - Deformity [Unknown]
  - Jaundice neonatal [Unknown]
  - Impaired reasoning [Unknown]
  - Bronchospasm [Unknown]
  - Cerumen impaction [Unknown]
  - Hypoplastic right heart syndrome [Unknown]
  - Congenital pulmonary valve atresia [Unknown]
  - Atrial septal defect [Unknown]
  - Emotional distress [Unknown]
  - Ocular hyperaemia [Unknown]
  - Right-to-left cardiac shunt [Unknown]
  - Respiratory distress [Unknown]
  - Hydronephrosis [Unknown]
  - Bradycardia neonatal [Unknown]
  - Pulmonary valve stenosis [Unknown]
  - Pyrexia [Unknown]
  - Feeding disorder [Unknown]
  - Cyanosis [Unknown]
  - Rhinitis [Unknown]
  - Upper respiratory tract infection [Unknown]
  - Gastroenteritis [Unknown]
  - Congenital hypothyroidism [Unknown]
  - Patent ductus arteriosus [Unknown]
  - Pyelocaliectasis [Unknown]
  - Apnoea [Unknown]
  - Pain [Unknown]
  - Cardiac murmur [Unknown]
  - Bladder dilatation [Unknown]
  - Cardiomegaly [Unknown]
  - Hypermetropia [Unknown]
  - Dental caries [Unknown]
  - Dermatitis diaper [Unknown]
  - Bronchitis [Unknown]
  - Pharyngitis [Unknown]
  - Pulmonary valve incompetence [Unknown]
  - Otitis media acute [Unknown]
  - Oedema [Unknown]
  - Oropharyngeal pain [Unknown]
  - Motor dysfunction [Unknown]
  - Injury [Not Recovered/Not Resolved]
  - Anhedonia [Unknown]
  - Cough [Unknown]
  - Musculoskeletal disorder [Unknown]
  - Congenital anomaly [Unknown]
  - Heart disease congenital [Unknown]
  - Poor sucking reflex [Unknown]
  - Eye discharge [Unknown]
  - Decreased appetite [Unknown]
  - Right ventricle outflow tract obstruction [Unknown]
  - Premature baby [Unknown]
  - Conjunctivitis [Unknown]

NARRATIVE: CASE EVENT DATE: 20110805
